FAERS Safety Report 7206402-2 (Version None)
Quarter: 2011Q1

REPORT INFORMATION
  Report Type: 
  Country: None (occurrence: None)
  Receive Date: 20110103
  Receipt Date: 20110103
  Transmission Date: 20110831
  Serious: Yes (Death, Hospitalization, Disabling)
  Sender: FDA-Public Use
  Company Number: PHHO2008TR07607

PATIENT
  Sex: Female
  Weight: 55 kg

DRUGS (5)
  1. PLACEBO [Suspect]
     Indication: CARCINOID TUMOUR
     Dosage: PLACEBO
     Route: 048
     Dates: start: 20080530, end: 20080610
  2. VOLTAREN [Concomitant]
     Dosage: 75 MG / DAY
     Route: 048
     Dates: start: 20080401
  3. LOMOTIL [Concomitant]
     Dosage: 2.5 MG BID
     Route: 048
     Dates: start: 20080521
  4. SANDOSTATIN LAR [Suspect]
     Indication: CARCINOID TUMOUR
     Dosage: DOUBLE BLIND
     Route: 048
     Dates: start: 20080530, end: 20080610
  5. HYZAAR [Concomitant]
     Dosage: 50/125 MG
     Route: 048
     Dates: start: 19980101

REACTIONS (9)
  - RENAL FAILURE ACUTE [None]
  - HYPOPHAGIA [None]
  - SEPSIS [None]
  - APHTHOUS STOMATITIS [None]
  - DIARRHOEA [None]
  - HYPERBILIRUBINAEMIA [None]
  - HEPATOTOXICITY [None]
  - DISEASE PROGRESSION [None]
  - MALNUTRITION [None]
